FAERS Safety Report 8581616-8 (Version None)
Quarter: 2012Q3

REPORT INFORMATION
  Report Type: 
  Country: None (occurrence: None)
  Receive Date: 20120809
  Receipt Date: 20120802
  Transmission Date: 20120928
  Serious: Yes (Hospitalization)
  Sender: FDA-Public Use
  Company Number: JP-ASTELLAS-2012JP007017

PATIENT
  Sex: Female
  Weight: 44 kg

DRUGS (13)
  1. PROGRAF [Suspect]
     Dosage: 2 MG, UID/QD
     Route: 048
     Dates: start: 20111210, end: 20120113
  2. LANSOPRAZOLE [Concomitant]
     Indication: GASTRIC ULCER
     Dosage: 15 MG, UID/QD
     Route: 048
     Dates: end: 20120724
  3. MUCOSTA [Concomitant]
     Indication: GASTRIC ULCER
     Dosage: 100 MG, BID
     Route: 048
     Dates: end: 20120724
  4. ACTONEL [Concomitant]
     Indication: PROPHYLAXIS
     Dosage: 17.5 MG, WEEKLY
     Route: 048
     Dates: end: 20120724
  5. MAGNESIUM OXIDE [Concomitant]
     Indication: CONSTIPATION
     Dosage: 1 G, UID/QD
     Route: 048
     Dates: end: 20120724
  6. HALCION [Concomitant]
     Indication: INSOMNIA
     Dosage: 0.25 MG, UID/QD
     Route: 048
     Dates: end: 20120724
  7. PROGRAF [Suspect]
     Indication: RHEUMATOID ARTHRITIS
     Dosage: 3 MG, UID/QD
     Route: 048
     Dates: start: 20120114, end: 20120724
  8. RHEUMATREX [Concomitant]
     Indication: RHEUMATOID ARTHRITIS
     Dosage: UNK MG, BID
     Route: 048
     Dates: start: 20090910, end: 20120724
  9. PREDNISOLONE [Concomitant]
     Indication: RHEUMATOID ARTHRITIS
     Dosage: 3 MG, UID/QD
     Route: 048
     Dates: start: 20120225, end: 20120724
  10. FOLIC ACID [Concomitant]
     Indication: RHEUMATOID ARTHRITIS
     Dosage: 5 MG, WEEKLY
     Route: 048
     Dates: start: 20110226, end: 20120724
  11. PROGRAF [Suspect]
     Dosage: 1.5 MG, UID/QD
     Route: 048
     Dates: start: 20110827, end: 20111209
  12. OLMESARTAN MEDOXOMIL [Concomitant]
     Indication: HYPERTENSION
     Dosage: UNK
     Route: 048
     Dates: end: 20120724
  13. CALBLOCK [Concomitant]
     Indication: HYPERTENSION
     Dosage: 8 MG, UID/QD
     Route: 048
     Dates: end: 20120724

REACTIONS (1)
  - RENAL IMPAIRMENT [None]
